FAERS Safety Report 18260221 (Version 1)
Quarter: 2020Q3

REPORT INFORMATION
  Report Type: Spontaneous
  Country: US (occurrence: US)
  Receive Date: 20200913
  Receipt Date: 20200913
  Transmission Date: 20201103
  Serious: Yes (Hospitalization, Other)
  Sender: FDA-Public Use
  Company Number: US-VALIDUS PHARMACEUTICALS LLC-US-2020VAL000745

PATIENT

DRUGS (7)
  1. METOPROLOL TARTRATE. [Suspect]
     Active Substance: METOPROLOL TARTRATE
     Indication: HYPERTENSION
     Dosage: UNK
     Route: 065
  2. IMMUNOGLOBULIN                     /00025201/ [Suspect]
     Active Substance: HUMAN IMMUNOGLOBULIN G
     Dosage: FOUR COURSES,FIVE DAYS PER MONTH
     Route: 042
  3. RITUXIMAB. [Suspect]
     Active Substance: RITUXIMAB
     Dosage: SINGLE DOSE EVERY THREE MONTHS
  4. RITUXIMAB. [Suspect]
     Active Substance: RITUXIMAB
     Indication: PEMPHIGUS
     Dosage: ONE DOSE OF RITUXIMAB (STABILIZING HIS PF)
  5. PREDNISONE. [Suspect]
     Active Substance: PREDNISONE
     Indication: PEMPHIGUS
     Dosage: 60 MG, QD (HIGH?DOSE)
  6. PREDNISONE. [Suspect]
     Active Substance: PREDNISONE
     Dosage: 10 MG, QD (WEANED DOWN)
  7. IMMUNOGLOBULIN                     /00025201/ [Suspect]
     Active Substance: HUMAN IMMUNOGLOBULIN G
     Indication: PEMPHIGUS
     Dosage: FIVE DAY COURSE (STABILIZING HIS PF)
     Route: 042

REACTIONS (6)
  - Pneumonia [Recovering/Resolving]
  - Acute kidney injury [Unknown]
  - Staphylococcal infection [Recovering/Resolving]
  - Gastric ulcer haemorrhage [Unknown]
  - Pemphigus [Recovering/Resolving]
  - Pneumatosis intestinalis [Unknown]
